FAERS Safety Report 9369310 (Version 1)
Quarter: 2013Q2

REPORT INFORMATION
  Report Type: Spontaneous
  Country: CH (occurrence: CH)
  Receive Date: 20130626
  Receipt Date: 20130626
  Transmission Date: 20140414
  Serious: Yes (Hospitalization)
  Sender: FDA-Public Use
  Company Number: CH-ROCHE-1241596

PATIENT
  Age: 29 Year
  Sex: Female

DRUGS (9)
  1. PEGASYS [Suspect]
     Indication: PRODUCT USED FOR UNKNOWN INDICATION
     Route: 058
     Dates: start: 20120828, end: 20121120
  2. COPEGUS [Suspect]
     Indication: PRODUCT USED FOR UNKNOWN INDICATION
     Route: 048
     Dates: start: 20120828, end: 20121126
  3. INCIVO [Suspect]
     Indication: PRODUCT USED FOR UNKNOWN INDICATION
     Route: 048
     Dates: start: 20121119
  4. ARANESP [Concomitant]
     Route: 058
     Dates: end: 20121123
  5. NEUPOGEN [Concomitant]
     Route: 058
  6. REVOLADE [Concomitant]
     Route: 048
     Dates: end: 20121126
  7. ATACAND [Concomitant]
     Route: 048
  8. TOREM [Concomitant]
     Route: 048
  9. PREDNISONA [Concomitant]
     Route: 048

REACTIONS (1)
  - Pancytopenia [Unknown]
